FAERS Safety Report 8188367 (Version 2)
Quarter: 2014Q1

REPORT INFORMATION
  Report Type: Spontaneous
  Country: US (occurrence: US)
  Receive Date: 20111019
  Receipt Date: 20140326
  Transmission Date: 20141002
  Serious: Yes (Hospitalization)
  Sender: FDA-Public Use
  Company Number: US-RANBAXY-2011US-49188

PATIENT
  Age: 51 Year
  Sex: Male

DRUGS (2)
  1. METFORMIN HYDROCHLORIDE [Suspect]
     Indication: PRODUCT USED FOR UNKNOWN INDICATION
     Dosage: UNK UNK, QID
     Route: 065
  2. ACETAMINOPHEN/OXYCODONE [Suspect]
     Indication: PAIN
     Dosage: UNK
     Route: 065

REACTIONS (4)
  - Accidental overdose [Recovering/Resolving]
  - Wrong drug administered [Recovered/Resolved]
  - Lactic acidosis [Recovering/Resolving]
  - Unresponsive to stimuli [Recovering/Resolving]
